FAERS Safety Report 8805931 (Version 1)
Quarter: 2012Q4

REPORT INFORMATION
  Report Type: Spontaneous
  Country: US (occurrence: None)
  Receive Date: 20120918
  Receipt Date: 20120918
  Transmission Date: 20130627
  Serious: Yes (Disabling, Other)
  Sender: FDA-Public Use
  Company Number: 2012MA011179

PATIENT
  Age: 39 Year
  Sex: Male

DRUGS (9)
  1. DIAZEPAM [Suspect]
  2. LYRICA [Suspect]
     Route: 048
  3. METHADONE [Concomitant]
  4. MIRTAZAPINE [Concomitant]
  5. AMFETAMINE W/DEXAMFETAMINE [Concomitant]
  6. CANNABIS [Concomitant]
  7. TOBACCO LEAF [Concomitant]
  8. NITRAZEPAM [Concomitant]
  9. DIHYDROCODEINE [Concomitant]

REACTIONS (4)
  - Withdrawal syndrome [None]
  - Drug dependence [None]
  - Drug abuse [None]
  - Mood altered [None]
